FAERS Safety Report 7305250-2 (Version None)
Quarter: 2011Q1

REPORT INFORMATION
  Report Type: 
  Country: None (occurrence: None)
  Receive Date: 20110222
  Receipt Date: 20110215
  Transmission Date: 20110831
  Serious: Yes (Other)
  Sender: FDA-Public Use
  Company Number: US-PFIZER INC-2010072886

PATIENT
  Sex: Male
  Weight: 98.866 kg

DRUGS (1)
  1. SUTENT [Suspect]
     Indication: THYROID CANCER
     Dosage: 37.5 MG, 1X/DAY
     Route: 048
     Dates: start: 20100513, end: 20100610

REACTIONS (4)
  - HYPERTENSION [None]
  - PALPITATIONS [None]
  - THROMBOCYTOPENIA [None]
  - RED BLOOD CELL COUNT DECREASED [None]
